FAERS Safety Report 5242074-4 (Version None)
Quarter: 2007Q1

REPORT INFORMATION
  Report Type: 
  Country: None (occurrence: None)
  Receive Date: 20070220
  Receipt Date: 20070213
  Transmission Date: 20070707
  Serious: Yes (Hospitalization)
  Sender: FDA-Public Use
  Company Number: US-MERCK-0702USA01005

PATIENT
  Age: 68 Year
  Sex: Male
  Weight: 93 kg

DRUGS (5)
  1. JANUVIA [Suspect]
     Indication: DIABETES MELLITUS NON-INSULIN-DEPENDENT
     Route: 048
     Dates: start: 20061101
  2. ALTACE [Concomitant]
     Indication: DIABETES MELLITUS NON-INSULIN-DEPENDENT
     Route: 048
     Dates: start: 20030721
  3. ALTACE [Concomitant]
     Indication: CARDIAC DISORDER
     Route: 048
     Dates: start: 20030721
  4. AVANDAMET [Concomitant]
     Indication: DIABETES MELLITUS NON-INSULIN-DEPENDENT
     Route: 048
     Dates: start: 20060327
  5. CADUET [Concomitant]
     Indication: BLOOD PRESSURE
     Route: 048
     Dates: start: 20050627

REACTIONS (5)
  - CHEST PAIN [None]
  - LIP SWELLING [None]
  - OEDEMA PERIPHERAL [None]
  - SWELLING FACE [None]
  - TESTICULAR SWELLING [None]
